FAERS Safety Report 21705605 (Version 1)
Quarter: 2022Q4

REPORT INFORMATION
  Report Type: Spontaneous
  Country: FR (occurrence: FR)
  Receive Date: 20221209
  Receipt Date: 20221209
  Transmission Date: 20230113
  Serious: Yes (Hospitalization)
  Sender: FDA-Public Use
  Company Number: None

PATIENT
  Age: 51 Year
  Sex: Male
  Weight: 107 kg

DRUGS (6)
  1. DALTEPARIN SODIUM [Suspect]
     Active Substance: DALTEPARIN SODIUM
     Indication: Thrombosis prophylaxis
     Dosage: NOT PROVIDED
     Route: 058
     Dates: start: 20221111
  2. SUFENTANIL CITRATE [Suspect]
     Active Substance: SUFENTANIL CITRATE
     Indication: Light anaesthesia
     Dosage: NOT PROVIDED
     Route: 042
     Dates: start: 20221111, end: 20221113
  3. DAPAGLIFLOZIN [Suspect]
     Active Substance: DAPAGLIFLOZIN
     Indication: Diabetes mellitus
     Dosage: NOT PROVIDED
     Route: 048
     Dates: start: 20221111, end: 20221112
  4. NIMBEX [Suspect]
     Active Substance: CISATRACURIUM BESYLATE
     Indication: Light anaesthesia
     Dosage: NOT PROVIDED
     Route: 042
     Dates: start: 20221111, end: 20221112
  5. DIPRIVAN [Suspect]
     Active Substance: PROPOFOL
     Indication: Light anaesthesia
     Dosage: NOT PROVIDED
     Route: 042
     Dates: start: 20221111, end: 20221113
  6. IOMERON [Suspect]
     Active Substance: IOMEPROL
     Indication: Computerised tomogram
     Dosage: 350 MG, SINGLE
     Route: 042
     Dates: start: 20221110, end: 20221110

REACTIONS (1)
  - Acute generalised exanthematous pustulosis [Not Recovered/Not Resolved]

NARRATIVE: CASE EVENT DATE: 20221112
